FAERS Safety Report 7359041-7 (Version None)
Quarter: 2011Q1

REPORT INFORMATION
  Report Type: 
  Country: None (occurrence: None)
  Receive Date: 20110310
  Receipt Date: 20110301
  Transmission Date: 20110831
  Serious: Yes (Other)
  Sender: FDA-Public Use
  Company Number: 11-000210

PATIENT
  Age: 21 Year
  Sex: Female
  Weight: 63.9 kg

DRUGS (1)
  1. LOESTRIN 24 FE [Suspect]
     Indication: CONTRACEPTION
     Dosage: 20/1000UG, QD, ORAL
     Route: 048
     Dates: start: 20110101, end: 20110219

REACTIONS (7)
  - SUICIDAL IDEATION [None]
  - DEPRESSION [None]
  - ANXIETY [None]
  - LOSS OF CONSCIOUSNESS [None]
  - VOMITING [None]
  - DECREASED APPETITE [None]
  - MALNUTRITION [None]
